FAERS Safety Report 7631604-0 (Version None)
Quarter: 2011Q3

REPORT INFORMATION
  Report Type: 
  Country: None (occurrence: None)
  Receive Date: 20110725
  Receipt Date: 20110117
  Transmission Date: 20111222
  Serious: No
  Sender: FDA-Public Use
  Company Number: US-BRISTOL-MYERS SQUIBB COMPANY-15489784

PATIENT
  Age: 53 Year
  Sex: Male

DRUGS (2)
  1. COUMADIN [Suspect]
     Indication: THROMBOSIS
     Dosage: RESTARTED THE COUMADIN ON 16NOV10 OR 17NOV10.
  2. METOPROLOL TARTRATE [Concomitant]

REACTIONS (2)
  - FURUNCLE [None]
  - RASH [None]
